FAERS Safety Report 5315536-9 (Version None)
Quarter: 2007Q2

REPORT INFORMATION
  Report Type: 
  Country: None (occurrence: None)
  Receive Date: 20070501
  Receipt Date: 20070501
  Transmission Date: 20071010
  Serious: Yes (Other)
  Sender: FDA-Public Use
  Company Number: None

PATIENT
  Age: 18 Year
  Sex: Female
  Weight: 64.4108 kg

DRUGS (1)
  1. LISTERINE AGENT COOL BLUE PFIZER [Suspect]
     Indication: DENTAL DISORDER PROPHYLAXIS
     Dosage: 10 ML DAILY PO
     Route: 048
     Dates: start: 20070201, end: 20070331

REACTIONS (15)
  - BEDRIDDEN [None]
  - IMMUNE SYSTEM DISORDER [None]
  - IMPAIRED HEALING [None]
  - INSOMNIA [None]
  - LETHARGY [None]
  - MALAISE [None]
  - NASOPHARYNGITIS [None]
  - ORAL INFECTION [None]
  - ORAL INTAKE REDUCED [None]
  - ORAL MUCOSAL BLISTERING [None]
  - ORAL PAIN [None]
  - PHARMACEUTICAL PRODUCT COMPLAINT [None]
  - PHARYNGITIS [None]
  - PYREXIA [None]
  - VIRAL INFECTION [None]
